FAERS Safety Report 5089300-2 (Version None)
Quarter: 2006Q3

REPORT INFORMATION
  Report Type: 
  Country: None (occurrence: None)
  Receive Date: 20060822
  Receipt Date: 20060810
  Transmission Date: 20061208
  Serious: Yes (Life-Threatening, Hospitalization, Other)
  Sender: FDA-Public Use
  Company Number: SE200606002709

PATIENT
  Age: 23 Year
  Sex: Female

DRUGS (2)
  1. ZYPREXA [Suspect]
     Indication: BIPOLAR I DISORDER
     Dosage: 50 TABLETS AT 7.5 MG
     Dates: start: 20060317, end: 20060317
  2. EFEXOR /USA/ (VENLAFAXINE HYDROCHLORIDE) [Concomitant]

REACTIONS (13)
  - ANXIETY [None]
  - BLOOD PRESSURE SYSTOLIC INCREASED [None]
  - CONFUSIONAL STATE [None]
  - DEPRESSED LEVEL OF CONSCIOUSNESS [None]
  - DRUG TOXICITY [None]
  - DYSPNOEA [None]
  - HEART RATE INCREASED [None]
  - INTENTIONAL OVERDOSE [None]
  - OVERDOSE [None]
  - PALLOR [None]
  - SNORING [None]
  - SOMNOLENCE [None]
  - SUICIDE ATTEMPT [None]
